FAERS Safety Report 10581399 (Version 3)
Quarter: 2015Q1

REPORT INFORMATION
  Report Type: Spontaneous
  Country: US (occurrence: US)
  Receive Date: 20141113
  Receipt Date: 20150106
  Transmission Date: 20150720
  Serious: Yes (Other)
  Sender: FDA-Public Use
  Company Number: US-BAYER-2014-167970

PATIENT
  Age: 22 Year
  Sex: Female
  Weight: 67.12 kg

DRUGS (2)
  1. MIRENA [Suspect]
     Active Substance: LEVONORGESTREL
     Indication: MENORRHAGIA
     Dosage: 20 MCG/24HR, CONT
     Route: 015
     Dates: start: 20140926
  2. MIRENA [Suspect]
     Active Substance: LEVONORGESTREL
     Indication: CONTRACEPTION
     Dosage: 20 MCG/24HR, CONT
     Route: 015
     Dates: start: 20140815, end: 20140926

REACTIONS (4)
  - Device expulsion [None]
  - Genital haemorrhage [None]
  - Discomfort [None]
  - Abdominal pain lower [None]

NARRATIVE: CASE EVENT DATE: 2014
